FAERS Safety Report 7098416-0 (Version None)
Quarter: 2010Q4

REPORT INFORMATION
  Report Type: 
  Country: None (occurrence: None)
  Receive Date: 20101112
  Receipt Date: 20101108
  Transmission Date: 20110411
  Serious: No
  Sender: FDA-Public Use
  Company Number: US-PFIZER INC-2010042312

PATIENT
  Sex: Female
  Weight: 58.957 kg

DRUGS (4)
  1. CHANTIX [Suspect]
     Indication: SMOKING CESSATION THERAPY
     Dosage: 1 MG, 2X/DAY
     Route: 048
     Dates: start: 20100303
  2. CALCIUM [Concomitant]
     Dosage: UNK
  3. FISH OIL [Concomitant]
  4. PSYLLIUM [Concomitant]
     Dosage: UNK

REACTIONS (1)
  - MADAROSIS [None]
